FAERS Safety Report 24290376 (Version 1)
Quarter: 2024Q3

REPORT INFORMATION
  Report Type: Spontaneous
  Country: US (occurrence: None)
  Receive Date: 20240906
  Receipt Date: 20240906
  Transmission Date: 20241017
  Serious: Yes (Hospitalization)
  Sender: Public
  Company Number: None

PATIENT
  Sex: Female
  Weight: 90.7 kg

DRUGS (7)
  1. FLUOROURACIL [Suspect]
     Active Substance: FLUOROURACIL
  2. LEUCOVORIN CALCIUM [Concomitant]
     Active Substance: LEUCOVORIN CALCIUM
  3. NIVOLUMAB [Concomitant]
     Active Substance: NIVOLUMAB
  4. ELOXATIN [Concomitant]
     Active Substance: OXALIPLATIN
  5. HEPARIN [Concomitant]
  6. LISINOPRIL [Concomitant]
     Active Substance: LISINOPRIL
  7. METOPROLOL [Concomitant]
     Active Substance: METOPROLOL

REACTIONS (5)
  - Hypotension [None]
  - Pyrexia [None]
  - Acute kidney injury [None]
  - Lymphocyte count decreased [None]
  - Infusion related reaction [None]

NARRATIVE: CASE EVENT DATE: 20240828
